FAERS Safety Report 18765436 (Version 2)
Quarter: 2021Q1

REPORT INFORMATION
  Report Type: Spontaneous
  Country: FR (occurrence: FR)
  Receive Date: 20210121
  Receipt Date: 20210202
  Transmission Date: 20210419
  Serious: Yes (Death, Hospitalization, Other)
  Sender: FDA-Public Use
  Company Number: FR-SA-2021SA015060

PATIENT
  Age: 87 Year
  Sex: Female

DRUGS (7)
  1. HYDROXYCHLOROQUINE SULFATE. [Suspect]
     Active Substance: HYDROXYCHLOROQUINE SULFATE
     Indication: COVID-19 TREATMENT
     Dosage: 200 MG, BID (200 MG, 2X/DAY)
     Dates: start: 2020, end: 2020
  2. METHYLPREDNISOLONE. [Suspect]
     Active Substance: METHYLPREDNISOLONE
     Indication: COVID-19 TREATMENT
     Dosage: 1 MG/KG, QD
     Dates: start: 20200330, end: 20200414
  3. HYDROXYCHLOROQUINE SULFATE. [Suspect]
     Active Substance: HYDROXYCHLOROQUINE SULFATE
     Indication: PRODUCT USE IN UNAPPROVED INDICATION
  4. SPIRAMYCIN [Suspect]
     Active Substance: SPIRAMYCIN
     Indication: COVID-19 TREATMENT
     Dosage: 4.5 MIU, QD (1.5 MIU, 3X/DAY)
     Dates: start: 2020, end: 2020
  5. ENOXAPARIN SODIUM. [Concomitant]
     Active Substance: ENOXAPARIN SODIUM
     Indication: THROMBOSIS PROPHYLAXIS
     Dosage: 6000 IU (ANTI?XA)
     Dates: start: 2020
  6. CEFTRIAXONE. [Suspect]
     Active Substance: CEFTRIAXONE
     Indication: COVID-19 TREATMENT
     Dosage: 2000 MG, QD
     Dates: start: 2020, end: 2020
  7. PIPERACILLIN/TAZOBACTAM [Concomitant]
     Active Substance: PIPERACILLIN SODIUM\TAZOBACTAM SODIUM
     Indication: ANTIBIOTIC PROPHYLAXIS
     Dosage: UNK
     Dates: start: 2020

REACTIONS (3)
  - Respiratory failure [Fatal]
  - Bronchopulmonary aspergillosis [Fatal]
  - Off label use [Unknown]

NARRATIVE: CASE EVENT DATE: 2020
